FAERS Safety Report 4881772-9 (Version None)
Quarter: 2006Q1

REPORT INFORMATION
  Report Type: 
  Country: None (occurrence: None)
  Receive Date: 20060117
  Receipt Date: 20060110
  Transmission Date: 20060701
  Serious: Yes (Hospitalization)
  Sender: FDA-Public Use
  Company Number: US-JNJFOC-20051102708

PATIENT
  Sex: Male
  Weight: 114.76 kg

DRUGS (15)
  1. REMICADE [Suspect]
     Dosage: 4 VIALS
     Route: 042
  2. REMICADE [Suspect]
     Indication: RHEUMATOID ARTHRITIS
     Route: 042
  3. METHOTREXATE [Concomitant]
     Dosage: 3-6 MONTHS
  4. PREDNISONE [Concomitant]
  5. PREDNISONE [Concomitant]
     Dosage: INCREASE BECAUSE OF LYMPH NODES
  6. PREDNISONE [Concomitant]
     Dosage: 3-6 MONTHS
  7. METFORMIN [Concomitant]
  8. ACTZ [Concomitant]
  9. VYTORIN [Concomitant]
     Dosage: 10/40 MG AT NIGHT
  10. FOLIC ACID [Concomitant]
  11. LODINE [Concomitant]
  12. HYTRIN [Concomitant]
  13. TRAZODONE [Concomitant]
  14. ACTONEL [Concomitant]
  15. HUMABID [Concomitant]
     Dosage: 1 DOSE TWICE DAILY

REACTIONS (2)
  - LYMPHADENITIS [None]
  - PROSTATE EXAMINATION ABNORMAL [None]
